FAERS Safety Report 17173808 (Version 1)
Quarter: 2019Q4

REPORT INFORMATION
  Report Type: Spontaneous
  Country: US (occurrence: US)
  Receive Date: 20191218
  Receipt Date: 20191218
  Transmission Date: 20200122
  Serious: No
  Sender: FDA-Public Use
  Company Number: US-UNICHEM PHARMACEUTICALS (USA) INC-UCM201909-000467

PATIENT
  Age: 62 Year
  Sex: Male

DRUGS (1)
  1. TIZANIDINE. [Suspect]
     Active Substance: TIZANIDINE
     Indication: PRODUCT USED FOR UNKNOWN INDICATION
     Dosage: TOOK TWO PILLS OF 2 MG , INSTEAD OF  ONE PILL.

REACTIONS (3)
  - Adverse event [Unknown]
  - Medication error [Unknown]
  - Dizziness [Unknown]
